FAERS Safety Report 16916626 (Version 1)
Quarter: 2019Q4

REPORT INFORMATION
  Report Type: Report from Study
  Country: None (occurrence: DO)
  Receive Date: 20191014
  Receipt Date: 20191014
  Transmission Date: 20200122
  Serious: Yes (Other)
  Sender: FDA-Public Use
  Company Number: DO-ABBVIE-19K-279-2961665-00

PATIENT
  Age: 45 Year
  Sex: Female
  Weight: 59.93 kg

DRUGS (4)
  1. AZORAN [Concomitant]
     Indication: CROHN^S DISEASE
     Dosage: 1 IN THE MORNING AND 1 IN NIGHT
     Route: 048
     Dates: start: 2012
  2. HUMIRA [Suspect]
     Active Substance: ADALIMUMAB
     Indication: CROHN^S DISEASE
     Route: 058
  3. CALCIUM [Concomitant]
     Active Substance: CALCIUM
     Indication: BONE DISORDER
     Route: 048
     Dates: start: 2014
  4. COMPLEX B [Concomitant]
     Active Substance: CALCIUM PANTOTHENATE\CYANOCOBALAMIN\NIACINAMIDE\PYRIDOXINE HYDROCHLORIDE\RIBOFLAVIN\THIAMINE MONONITRATE
     Indication: ANAEMIA
     Route: 048
     Dates: start: 2009

REACTIONS (4)
  - Faecal calprotectin abnormal [Not Recovered/Not Resolved]
  - Haemoglobin decreased [Unknown]
  - Lumbar hernia [Recovering/Resolving]
  - Back pain [Recovering/Resolving]

NARRATIVE: CASE EVENT DATE: 20190801
